FAERS Safety Report 24424913 (Version 3)
Quarter: 2024Q4

REPORT INFORMATION
  Report Type: Spontaneous
  Country: US (occurrence: US)
  Receive Date: 20241010
  Receipt Date: 20241018
  Transmission Date: 20250114
  Serious: Yes (Other)
  Sender: AMNEAL
  Company Number: US-AMNEAL PHARMACEUTICALS-2024-AMRX-03573

PATIENT
  Sex: Female

DRUGS (1)
  1. ADRENACLICK [Suspect]
     Active Substance: EPINEPHRINE
     Indication: Allergy prophylaxis
     Dosage: 0.3 MG
     Route: 065
     Dates: start: 20240927

REACTIONS (2)
  - Device failure [Unknown]
  - No adverse event [Unknown]

NARRATIVE: CASE EVENT DATE: 20240927
